FAERS Safety Report 5265862-7 (Version None)
Quarter: 2007Q1

REPORT INFORMATION
  Report Type: 
  Country: None (occurrence: None)
  Receive Date: 20070312
  Receipt Date: 20070312
  Transmission Date: 20070707
  Serious: Yes (Hospitalization)
  Sender: FDA-Public Use
  Company Number: None

PATIENT
  Sex: Male
  Weight: 87.5896 kg

DRUGS (1)
  1. AZITHROMYCIN [Suspect]
     Indication: PNEUMONIA
     Dosage: 250MG DAILY PO
     Route: 048
     Dates: start: 20070214, end: 20070219

REACTIONS (4)
  - HEADACHE [None]
  - PANCREATITIS [None]
  - PRODUCTIVE COUGH [None]
  - WHEEZING [None]
